FAERS Safety Report 5072388-2 (Version None)
Quarter: 2006Q3

REPORT INFORMATION
  Report Type: 
  Country: None (occurrence: None)
  Receive Date: 20060710
  Receipt Date: 20060210
  Transmission Date: 20061208
  Serious: Yes (Other)
  Sender: FDA-Public Use
  Company Number: PROG00205004317

PATIENT
  Sex: Female

DRUGS (1)
  1. PROMETRIUM [Suspect]
     Indication: ILL-DEFINED DISORDER
     Dosage: UNKNOWN DAILY UNKNOWN 200 MG DAILY

REACTIONS (1)
  - CEREBROVASCULAR ACCIDENT [None]
